FAERS Safety Report 16893662 (Version 1)
Quarter: 2019Q4

REPORT INFORMATION
  Report Type: Spontaneous
  Country: US (occurrence: US)
  Receive Date: 20190813
  Receipt Date: 20190813
  Transmission Date: 20200122
  Serious: No
  Sender: FDA-Public Use
  Company Number: None

PATIENT

DRUGS (4)
  1. METOCLOPRAMIDE ORAL SOLUTION [Suspect]
     Active Substance: METOCLOPRAMIDE
  2. VERAPAMIL INJECTION [Suspect]
     Active Substance: VERAPAMIL HYDROCHLORIDE
  3. MEGESTROL ACETATE ORAL SUSPENTION [Suspect]
     Active Substance: MEGESTROL ACETATE
  4. NALOXONE [Suspect]
     Active Substance: NALOXONE

REACTIONS (1)
  - Product packaging confusion [None]
